FAERS Safety Report 5178084-5 (Version None)
Quarter: 2006Q4

REPORT INFORMATION
  Report Type: 
  Country: None (occurrence: None)
  Receive Date: 20061218
  Receipt Date: 20060730
  Transmission Date: 20070319
  Serious: No
  Sender: FDA-Public Use
  Company Number: US-AMGEN-KDL188365

PATIENT
  Sex: Female

DRUGS (2)
  1. ENBREL [Suspect]
     Indication: RHEUMATOID ARTHRITIS
     Route: 058
     Dates: start: 20050715
  2. METHOTREXATE [Concomitant]
     Dates: start: 19920101

REACTIONS (4)
  - EAR INFECTION [None]
  - INDURATION [None]
  - INFLUENZA [None]
  - NASOPHARYNGITIS [None]
